FAERS Safety Report 16456221 (Version 14)
Quarter: 2022Q1

REPORT INFORMATION
  Report Type: Report from Study
  Country: CO (occurrence: CO)
  Receive Date: 20190620
  Receipt Date: 20220103
  Transmission Date: 20220423
  Serious: Yes (Hospitalization)
  Sender: FDA-Public Use
  Company Number: PHHY2018CO067011

PATIENT
  Sex: Female
  Weight: 74 kg

DRUGS (14)
  1. TASIGNA [Suspect]
     Active Substance: NILOTINIB
     Indication: Chronic myeloid leukaemia
     Dosage: 800 MG, QD
     Route: 048
  2. TASIGNA [Suspect]
     Active Substance: NILOTINIB
     Dosage: 800 MG, QD
     Route: 048
     Dates: start: 20180101
  3. TASIGNA [Suspect]
     Active Substance: NILOTINIB
     Dosage: 400 MG, Q12H
     Route: 048
     Dates: start: 2018
  4. TASIGNA [Suspect]
     Active Substance: NILOTINIB
     Dosage: 800 MG, QD
     Route: 048
  5. TASIGNA [Suspect]
     Active Substance: NILOTINIB
     Dosage: 2 DF, BID (2 CAPSULES OF 200 MG AT 5 AM IN THE MORNING AND 2 CAPSULES OF 200 MG AT 5 PM IN AFTERNOON
     Route: 048
  6. TASIGNA [Suspect]
     Active Substance: NILOTINIB
     Dosage: 800 MG, QD
     Route: 048
     Dates: end: 201904
  7. TASIGNA [Suspect]
     Active Substance: NILOTINIB
     Dosage: UNK
     Route: 048
     Dates: start: 2018, end: 201912
  8. TASIGNA [Suspect]
     Active Substance: NILOTINIB
     Dosage: 800 MG, QD
     Route: 048
  9. TASIGNA [Suspect]
     Active Substance: NILOTINIB
     Dosage: 800 MG, QD
     Route: 048
     Dates: start: 20200120
  10. CEFIXIME [Concomitant]
     Active Substance: CEFIXIME
     Indication: Thyroid disorder
     Dosage: 50 MG
     Route: 065
  11. MEBEVERINE [Concomitant]
     Active Substance: MEBEVERINE
     Indication: Functional gastrointestinal disorder
     Dosage: 20 MG, Q12H
     Route: 065
  12. SYNTHROID [Concomitant]
     Active Substance: LEVOTHYROXINE SODIUM
     Indication: Product used for unknown indication
     Dosage: 75 MG
     Route: 065
  13. VALTAN H [Concomitant]
     Indication: Product used for unknown indication
     Dosage: 150 MG
     Route: 065
  14. DILTIAZEM [Concomitant]
     Active Substance: DILTIAZEM
     Indication: Product used for unknown indication
     Route: 065

REACTIONS (36)
  - Amoebiasis [Unknown]
  - Limb injury [Unknown]
  - Skeletal injury [Unknown]
  - Skin fissures [Unknown]
  - Fall [Unknown]
  - Blood pressure increased [Unknown]
  - Hypertension [Unknown]
  - Gastrointestinal infection [Unknown]
  - Abdominal pain [Not Recovered/Not Resolved]
  - Diarrhoea [Unknown]
  - Gastritis [Unknown]
  - Abdominal pain upper [Unknown]
  - Nausea [Unknown]
  - Insomnia [Unknown]
  - Diverticulum [Unknown]
  - Intervertebral disc degeneration [Unknown]
  - Swelling [Not Recovered/Not Resolved]
  - Pain [Unknown]
  - Peripheral swelling [Unknown]
  - Pain in extremity [Unknown]
  - Alopecia [Not Recovered/Not Resolved]
  - Arthralgia [Unknown]
  - Concomitant disease aggravated [Unknown]
  - Depressed mood [Unknown]
  - Somnolence [Unknown]
  - Colitis [Unknown]
  - Fluid retention [Unknown]
  - Malaise [Unknown]
  - Joint swelling [Unknown]
  - Platelet count decreased [Unknown]
  - Headache [Unknown]
  - Fatigue [Unknown]
  - Back pain [Unknown]
  - Oedema peripheral [Unknown]
  - Inappropriate schedule of product administration [Unknown]
  - Gait disturbance [Unknown]

NARRATIVE: CASE EVENT DATE: 20180101
